FAERS Safety Report 4912183-5 (Version None)
Quarter: 2006Q1

REPORT INFORMATION
  Report Type: 
  Country: None (occurrence: None)
  Receive Date: 20060215
  Receipt Date: 20050912
  Transmission Date: 20060701
  Serious: No
  Sender: FDA-Public Use
  Company Number: US-GLAXOSMITHKLINE-A0573839A

PATIENT
  Age: 60 Year
  Sex: Female

DRUGS (8)
  1. VALTREX [Suspect]
     Indication: DRUG USE FOR UNKNOWN INDICATION
     Dosage: 500MG PER DAY
     Route: 048
     Dates: start: 20050701
  2. CRESTOR [Concomitant]
  3. TOPROL-XL [Concomitant]
  4. LOZOL [Concomitant]
  5. EVISTA [Concomitant]
  6. FLONASE [Concomitant]
  7. BACTROBAN [Concomitant]
  8. ACYCLOVIR SODIUM [Concomitant]
     Route: 065

REACTIONS (2)
  - PARAESTHESIA [None]
  - SKIN BURNING SENSATION [None]
